FAERS Safety Report 19041177 (Version 2)
Quarter: 2022Q1

REPORT INFORMATION
  Report Type: Spontaneous
  Country: US (occurrence: None)
  Receive Date: 20210322
  Receipt Date: 20220329
  Transmission Date: 20220423
  Serious: Yes (Other)
  Sender: FDA-Public Use
  Company Number: US-ROCHE-2667780

PATIENT
  Sex: Female

DRUGS (1)
  1. OCREVUS [Suspect]
     Active Substance: OCRELIZUMAB
     Indication: Multiple sclerosis
     Dosage: STRENGTH: 300MG/10 ML
     Route: 042
     Dates: start: 20190205

REACTIONS (4)
  - Multiple sclerosis [Unknown]
  - Fatigue [Unknown]
  - Drug ineffective [Unknown]
  - Coordination abnormal [Unknown]
